FAERS Safety Report 8445068-0 (Version None)
Quarter: 2012Q2

REPORT INFORMATION
  Report Type: 
  Country: None (occurrence: None)
  Receive Date: 20120618
  Receipt Date: 20120607
  Transmission Date: 20120825
  Serious: Yes (Hospitalization, Other)
  Sender: FDA-Public Use
  Company Number: US-ACTELION-A-NJ2012-63960

PATIENT

DRUGS (5)
  1. COUMADIN [Concomitant]
  2. ARANESP [Concomitant]
  3. TYVASO [Concomitant]
  4. OXYGEN [Concomitant]
  5. TRACLEER [Suspect]
     Indication: PULMONARY ARTERIAL HYPERTENSION
     Dosage: UNK
     Route: 048
     Dates: start: 20100123

REACTIONS (5)
  - VALVULOPLASTY CARDIAC [None]
  - MITRAL VALVE CALCIFICATION [None]
  - LUNG DISORDER [None]
  - AORTIC STENOSIS [None]
  - DYSPNOEA [None]
